FAERS Safety Report 5932912-1 (Version None)
Quarter: 2008Q4

REPORT INFORMATION
  Report Type: 
  Country: None (occurrence: None)
  Receive Date: 20081027
  Receipt Date: 20081027
  Transmission Date: 20090506
  Serious: Yes (Life-Threatening, Other)
  Sender: FDA-Public Use
  Company Number: None

PATIENT
  Age: 25 Year
  Sex: Female
  Weight: 55.7924 kg

DRUGS (3)
  1. CLARITHROMYCIN [Suspect]
     Indication: BRONCHITIS
     Dosage: 1 500MG TABLET 2X DAILY PO, MID TO LATE OCTOBER 2007
     Route: 048
     Dates: start: 20071001
  2. CLARITHROMYCIN [Suspect]
     Indication: SINUSITIS
     Dosage: 1 500MG TABLET 2X DAILY PO
     Route: 048
     Dates: start: 20081022, end: 20081024
  3. OTC TYLENOL SINUS [Concomitant]

REACTIONS (9)
  - ANXIETY [None]
  - CONFUSIONAL STATE [None]
  - DEPRESSION [None]
  - DIARRHOEA [None]
  - DYSGEUSIA [None]
  - DYSTHYMIC DISORDER [None]
  - MOOD SWINGS [None]
  - NAUSEA [None]
  - SUICIDAL IDEATION [None]
